FAERS Safety Report 23132916 (Version 1)
Quarter: 2023Q4

REPORT INFORMATION
  Report Type: Spontaneous
  Country: US (occurrence: US)
  Receive Date: 20231101
  Receipt Date: 20231101
  Transmission Date: 20240109
  Serious: Yes (Other)
  Sender: FDA-Public Use
  Company Number: US-drreddys-SPO/USA/23/0180737

PATIENT
  Age: 31 Year

DRUGS (1)
  1. ZENATANE [Suspect]
     Active Substance: ISOTRETINOIN
     Indication: Product used for unknown indication

REACTIONS (9)
  - Colon cancer metastatic [Unknown]
  - Metastases to lymph nodes [Unknown]
  - Metastases to liver [Unknown]
  - Metastases to ovary [Unknown]
  - Carcinoembryonic antigen decreased [Unknown]
  - Anaemia [Unknown]
  - Dermatitis [Unknown]
  - Dermatitis acneiform [Unknown]
  - Pustule [Unknown]

NARRATIVE: CASE EVENT DATE: 20230818
